FAERS Safety Report 23149821 (Version 1)
Quarter: 2023Q4

REPORT INFORMATION
  Report Type: Spontaneous
  Country: US (occurrence: None)
  Receive Date: 20231104
  Receipt Date: 20231104
  Transmission Date: 20240109
  Serious: Yes (Other)
  Sender: FDA-Public Use
  Company Number: None

PATIENT
  Sex: Male

DRUGS (1)
  1. DIETARY SUPPLEMENT\HEMP [Suspect]
     Active Substance: DIETARY SUPPLEMENT\HEMP

REACTIONS (3)
  - Personality change [None]
  - Agitation [None]
  - Mania [None]

NARRATIVE: CASE EVENT DATE: 20231104
